FAERS Safety Report 6717065-4 (Version None)
Quarter: 2010Q2

REPORT INFORMATION
  Report Type: 
  Country: None (occurrence: None)
  Receive Date: 20100510
  Receipt Date: 20100506
  Transmission Date: 20101027
  Serious: Yes (Hospitalization)
  Sender: FDA-Public Use
  Company Number: AU-JNJFOC-20090506958

PATIENT
  Sex: Male
  Weight: 2.95 kg

DRUGS (8)
  1. TOPAMAX [Suspect]
     Indication: DRUG EXPOSURE DURING PREGNANCY
     Route: 048
  2. CARBAMAZEPINE [Concomitant]
     Indication: DRUG EXPOSURE DURING PREGNANCY
     Route: 048
  3. CLONAZEPAM [Concomitant]
     Indication: DRUG EXPOSURE DURING PREGNANCY
     Route: 048
  4. LEVETIRACETAM [Concomitant]
     Indication: DRUG EXPOSURE DURING PREGNANCY
     Route: 048
  5. LEVETIRACETAM [Concomitant]
     Route: 048
  6. PHENYTOIN [Concomitant]
     Indication: DRUG EXPOSURE DURING PREGNANCY
     Route: 048
  7. FOLIC ACID [Concomitant]
     Indication: DRUG EXPOSURE DURING PREGNANCY
     Route: 048
  8. NIFEDIPINE [Concomitant]
     Indication: DRUG EXPOSURE DURING PREGNANCY
     Route: 048

REACTIONS (1)
  - RESPIRATORY DISTRESS [None]
